FAERS Safety Report 17761728 (Version 1)
Quarter: 2020Q2

REPORT INFORMATION
  Report Type: Spontaneous
  Country: FR (occurrence: FR)
  Receive Date: 20200508
  Receipt Date: 20200508
  Transmission Date: 20200714
  Serious: Yes (Death)
  Sender: FDA-Public Use
  Company Number: FR-CADILA HEALTHCARE LIMITED-FR-ZYDUS-027090

PATIENT

DRUGS (7)
  1. LIRAGLUTIDE [Concomitant]
     Active Substance: LIRAGLUTIDE
  2. CIPROFLOXACINE [Concomitant]
     Active Substance: CIPROFLOXACIN
  3. ULTRAVIST [Suspect]
     Active Substance: IOPROMIDE
     Indication: COMPUTERISED TOMOGRAM
     Dosage: 100 MILLILITER,IN TOTAL,(INTERVAL :1 TOTAL)
     Route: 042
     Dates: start: 20180731, end: 20180731
  4. NOVORAPID [Concomitant]
     Active Substance: INSULIN ASPART
  5. VILDAGLIPTINE [Concomitant]
     Active Substance: VILDAGLIPTIN
  6. METFORMIN [Suspect]
     Active Substance: METFORMIN HYDROCHLORIDE
     Indication: TYPE 2 DIABETES MELLITUS
     Dosage: 2000 MILLIGRAM,(INTERVAL :1 DAYS)
     Route: 048
     Dates: end: 20180805
  7. GLICLAZIDE [Concomitant]
     Active Substance: GLICLAZIDE

REACTIONS (3)
  - Multiple organ dysfunction syndrome [Fatal]
  - Overdose [Fatal]
  - Lactic acidosis [Fatal]

NARRATIVE: CASE EVENT DATE: 20180805
